FAERS Safety Report 15412431 (Version 3)
Quarter: 2018Q4

REPORT INFORMATION
  Report Type: Spontaneous
  Country: US (occurrence: US)
  Receive Date: 20180921
  Receipt Date: 20181217
  Transmission Date: 20190204
  Serious: No
  Sender: FDA-Public Use
  Company Number: US-SA-2018SA263110

PATIENT
  Age: 59 Year
  Sex: Male

DRUGS (5)
  1. TRIAMCINOLONE [Concomitant]
     Active Substance: TRIAMCINOLONE
     Indication: ECZEMA
     Dosage: 0.1 %
  2. DUPIXENT [Suspect]
     Active Substance: DUPILUMAB
     Indication: PRODUCT USED FOR UNKNOWN INDICATION
     Dosage: 300 MG, QOW
     Route: 058
     Dates: start: 20180302
  3. ALBUTEROL SULFATE. [Concomitant]
     Active Substance: ALBUTEROL SULFATE
     Indication: ASTHMA
  4. FLUTICASONE. [Concomitant]
     Active Substance: FLUTICASONE
  5. PRAVASTATIN. [Concomitant]
     Active Substance: PRAVASTATIN
     Indication: BLOOD CHOLESTEROL INCREASED
     Dosage: 20 MG, QD

REACTIONS (6)
  - Eczema [Unknown]
  - Therapeutic response decreased [Unknown]
  - Injection site reaction [Recovered/Resolved]
  - Pruritus [Unknown]
  - Injection site vesicles [Recovered/Resolved]
  - Injection site pain [Recovered/Resolved]
